FAERS Safety Report 8747348 (Version 2)
Quarter: 2012Q4

REPORT INFORMATION
  Report Type: 
  Country: JP (occurrence: JP)
  Receive Date: 20120827
  Receipt Date: 20120905
  Transmission Date: 20130627
  Serious: Yes (Hospitalization, Other)
  Sender: FDA-Public Use
  Company Number: JP-B.I. PHARMACEUTICALS,INC./RIDGEFIELD-2012-BP-20187NB

PATIENT
  Age: 76 Year
  Sex: Male

DRUGS (10)
  1. MICARDIS [Suspect]
     Dosage: 80 mg
     Route: 048
  2. LAC-B [Concomitant]
     Dosage: 3 g
     Route: 048
  3. BIOFERMIN R [Concomitant]
     Route: 048
  4. URSO [Concomitant]
     Dosage: 600 mg
     Route: 048
  5. PRIMPERAN [Concomitant]
     Dosage: 15 mg
     Route: 048
  6. ADALAT L [Concomitant]
     Dosage: 20 mg
     Route: 048
  7. FLIVAS [Concomitant]
     Dosage: 50 mg
     Route: 048
  8. MAGMITT [Concomitant]
     Dosage: 1500 mg
     Route: 048
  9. RHYTHMY [Concomitant]
     Route: 048
  10. TAKEPRON [Concomitant]
     Dosage: 15 mg
     Route: 048

REACTIONS (2)
  - Transient ischaemic attack [Unknown]
  - Rhabdomyolysis [Unknown]
